FAERS Safety Report 7723465 (Version 3)
Quarter: 2013Q3

REPORT INFORMATION
  Report Type: Report from Study
  Country: NL (occurrence: NL)
  Receive Date: 20101220
  Receipt Date: 20130923
  Transmission Date: 20140515
  Serious: Yes (Hospitalization)
  Sender: FDA-Public Use
  Company Number: NL-MEDIMMUNE-MEDI-0011994

PATIENT
  Age: 3 Month
  Sex: Male
  Weight: 5.8 kg

DRUGS (5)
  1. SYNAGIS [Suspect]
     Indication: ANTIVIRAL PROPHYLAXIS
     Route: 030
     Dates: start: 20101028
  2. DIGOXIN [Concomitant]
     Dates: start: 2010
  3. FUROSEMIDE [Concomitant]
     Dates: start: 2010
  4. ACETYLSALICYLATE CALCIUM [Concomitant]
     Dates: start: 2010
  5. SPIRONOLACTONE [Concomitant]
     Dates: start: 2010

REACTIONS (1)
  - Dyspnoea [Not Recovered/Not Resolved]
